FAERS Safety Report 10055645 (Version 1)
Quarter: 2014Q2

REPORT INFORMATION
  Report Type: Spontaneous
  Country: US (occurrence: None)
  Receive Date: 20140402
  Receipt Date: 20140402
  Transmission Date: 20141212
  Serious: Yes (Life-Threatening, Disabling)
  Sender: FDA-Public Use
  Company Number: None

PATIENT
  Age: 51 Year
  Sex: Male
  Weight: 86.18 kg

DRUGS (1)
  1. PERCOCET [Suspect]
     Indication: PAIN MANAGEMENT
     Dosage: 1X FOUR TIMES DAILY TAKEN BY MOUTH
     Route: 048
     Dates: start: 20140312, end: 20140401

REACTIONS (8)
  - Product quality issue [None]
  - Respiratory disorder [None]
  - Hypertension [None]
  - Chest pain [None]
  - Hypoaesthesia [None]
  - Paraesthesia [None]
  - Hypoaesthesia [None]
  - Product formulation issue [None]
